FAERS Safety Report 12265682 (Version 1)
Quarter: 2016Q2

REPORT INFORMATION
  Report Type: Spontaneous
  Country: US (occurrence: US)
  Receive Date: 20160413
  Receipt Date: 20160413
  Transmission Date: 20160815
  Serious: No
  Sender: FDA-Public Use
  Company Number: US-FERRINGPH-2015FE01612

PATIENT
  Age: 63 Year
  Sex: Female

DRUGS (13)
  1. QVAR [Suspect]
     Active Substance: BECLOMETHASONE DIPROPIONATE
     Indication: ASTHMA
     Dosage: UNK, 2 TIMES DAILY
     Route: 050
     Dates: start: 20150303, end: 20150401
  2. FLONASE                            /00908302/ [Concomitant]
     Active Substance: MOMETASONE FUROATE
     Indication: MULTIPLE ALLERGIES
  3. HYOMAX [Concomitant]
     Active Substance: HYOSCYAMINE SULFATE
     Indication: IRRITABLE BOWEL SYNDROME
  4. ABILIFY [Concomitant]
     Active Substance: ARIPIPRAZOLE
     Indication: SCHIZOAFFECTIVE DISORDER
  5. ESTRADIOL. [Concomitant]
     Active Substance: ESTRADIOL
     Indication: VULVOVAGINAL DRYNESS
  6. GEODON [Concomitant]
     Active Substance: ZIPRASIDONE HYDROCHLORIDE\ZIPRASIDONE MESYLATE
     Indication: SCHIZOAFFECTIVE DISORDER
  7. TOPAMAX [Concomitant]
     Active Substance: TOPIRAMATE
     Indication: PROPHYLAXIS
  8. GLUCOPHAGE [Concomitant]
     Active Substance: METFORMIN HYDROCHLORIDE
     Indication: DIABETES INSIPIDUS
  9. FOSAMAX [Concomitant]
     Active Substance: ALENDRONATE SODIUM
     Indication: OSTEOPOROSIS
  10. DDAVP [Suspect]
     Active Substance: DESMOPRESSIN ACETATE
     Indication: PRODUCT USED FOR UNKNOWN INDICATION
  11. LOSARTAN. [Concomitant]
     Active Substance: LOSARTAN
     Indication: HYPERTENSION
  12. DILTIAZEM [Concomitant]
     Active Substance: DILTIAZEM
     Indication: HYPERTENSION
  13. SINGULAIR [Concomitant]
     Active Substance: MONTELUKAST SODIUM
     Indication: ASTHMA

REACTIONS (13)
  - Movement disorder [Recovered/Resolved]
  - Influenza like illness [Recovered/Resolved]
  - Weight decreased [Not Recovered/Not Resolved]
  - Fall [Recovered/Resolved]
  - Urine output increased [Recovered/Resolved]
  - Fatigue [Recovered/Resolved]
  - Drug interaction [Recovered/Resolved]
  - Asthenia [Recovered/Resolved]
  - Chills [Recovered/Resolved]
  - Pollakiuria [Recovered/Resolved]
  - Pyrexia [Recovered/Resolved]
  - Pain [Recovered/Resolved]
  - Myalgia [Not Recovered/Not Resolved]

NARRATIVE: CASE EVENT DATE: 20150309
